FAERS Safety Report 24191401 (Version 1)
Quarter: 2024Q3

REPORT INFORMATION
  Report Type: Report from Study
  Country: US (occurrence: US)
  Receive Date: 20240808
  Receipt Date: 20240808
  Transmission Date: 20241017
  Serious: Yes (Hospitalization)
  Sender: HLS THERAPEUTICS
  Company Number: US-HLS-202400530

PATIENT
  Age: 63 Year
  Sex: Male

DRUGS (1)
  1. CLOZAPINE [Suspect]
     Active Substance: CLOZAPINE
     Indication: Product used for unknown indication
     Dosage: 100MG-3 TABLETS NIGHTLY
     Route: 048

REACTIONS (2)
  - Neutrophil count increased [Unknown]
  - Localised infection [Unknown]

NARRATIVE: CASE EVENT DATE: 20240602
